FAERS Safety Report 13388323 (Version 1)
Quarter: 2017Q1

REPORT INFORMATION
  Report Type: Spontaneous
  Country: JP (occurrence: JP)
  Receive Date: 20170330
  Receipt Date: 20170330
  Transmission Date: 20170429
  Serious: Yes (Hospitalization, Other)
  Sender: FDA-Public Use
  Company Number: JP-BAXTER-2017BAX013714

PATIENT
  Age: 74 Year
  Sex: Female

DRUGS (4)
  1. ENDOXAN 1G [Suspect]
     Active Substance: CYCLOPHOSPHAMIDE
     Dosage: COMPLETED 3 COURSES
     Route: 042
     Dates: start: 20170221, end: 20170221
  2. DOCETAXEL. [Suspect]
     Active Substance: DOCETAXEL
     Dosage: COMPLETED 3 COURSES
     Route: 042
     Dates: start: 20170221, end: 20170221
  3. ENDOXAN 1G [Suspect]
     Active Substance: CYCLOPHOSPHAMIDE
     Indication: BREAST CANCER
     Dosage: FIRST COURSE
     Route: 042
  4. DOCETAXEL. [Suspect]
     Active Substance: DOCETAXEL
     Indication: BREAST CANCER
     Dosage: FIRST COURSE
     Route: 042

REACTIONS (10)
  - Wound [Recovering/Resolving]
  - Local swelling [Recovering/Resolving]
  - Decreased appetite [Recovering/Resolving]
  - Nausea [Recovering/Resolving]
  - Staphylococcal infection [Recovering/Resolving]
  - Erythema [Recovering/Resolving]
  - Staphylococcal bacteraemia [Recovered/Resolved]
  - Vomiting [Recovering/Resolving]
  - Localised infection [Recovering/Resolving]
  - Dehydration [Recovered/Resolved]

NARRATIVE: CASE EVENT DATE: 20170301
